FAERS Safety Report 8037791-7 (Version None)
Quarter: 2012Q1

REPORT INFORMATION
  Report Type: 
  Country: None (occurrence: None)
  Receive Date: 20120111
  Receipt Date: 20120102
  Transmission Date: 20120608
  Serious: Yes (Hospitalization)
  Sender: FDA-Public Use
  Company Number: FR-ASTRAZENECA-2012SE00734

PATIENT
  Age: 82 Year
  Sex: Male

DRUGS (11)
  1. ALEPSAL [Suspect]
     Indication: EPILEPSY
     Route: 048
  2. ATACAND [Suspect]
     Route: 048
     Dates: end: 20111123
  3. BISOPROLOL FUMARATE [Suspect]
     Route: 048
  4. NITRODERM [Suspect]
     Route: 062
  5. NEXIUM [Suspect]
     Route: 048
     Dates: end: 20111123
  6. ASPIRIN [Suspect]
     Route: 048
  7. EZETIMIBE [Suspect]
     Dosage: 10/40 MG
     Route: 048
  8. DEPAKENE [Suspect]
     Indication: EPILEPSY
     Route: 048
  9. PLAVIX [Suspect]
     Route: 048
     Dates: start: 20110901
  10. LASIX [Suspect]
     Route: 048
     Dates: start: 20110901
  11. ALLOPURINOL [Suspect]
     Route: 048
     Dates: end: 20111123

REACTIONS (2)
  - APLASTIC ANAEMIA [None]
  - CONDITION AGGRAVATED [None]
